FAERS Safety Report 8826297 (Version 2)
Quarter: 2013Q2

REPORT INFORMATION
  Report Type: Spontaneous
  Country: BR (occurrence: BR)
  Receive Date: 20121005
  Receipt Date: 20130606
  Transmission Date: 20140414
  Serious: Yes (Hospitalization)
  Sender: FDA-Public Use
  Company Number: BR-BRISTOL-MYERS SQUIBB COMPANY-17009150

PATIENT
  Age: 79 Year
  Sex: Male

DRUGS (1)
  1. ONGLYZA TABS [Suspect]
     Indication: DIABETES MELLITUS
     Dosage: 3 YEARS AGO
     Route: 048

REACTIONS (1)
  - Gastrointestinal disorder [Recovered/Resolved]
